FAERS Safety Report 18848866 (Version 1)
Quarter: 2021Q1

REPORT INFORMATION
  Report Type: Report from Study
  Country: IN (occurrence: IN)
  Receive Date: 20210205
  Receipt Date: 20210205
  Transmission Date: 20210419
  Serious: Yes (Death)
  Sender: FDA-Public Use
  Company Number: NVSC2021IN025957

PATIENT
  Age: 50 Year
  Sex: Male

DRUGS (1)
  1. VYMADA [Suspect]
     Active Substance: SACUBITRIL\VALSARTAN
     Indication: CARDIAC FAILURE CHRONIC
     Dosage: 0.5 DF, QD (50 MG 1/2 TABLET QD)
     Route: 065
     Dates: start: 20190508

REACTIONS (3)
  - Inappropriate schedule of product administration [Unknown]
  - Cardiac arrest [Fatal]
  - Wrong technique in product usage process [Unknown]
